FAERS Safety Report 6102504-2 (Version None)
Quarter: 2009Q1

REPORT INFORMATION
  Report Type: 
  Country: None (occurrence: None)
  Receive Date: 20090304
  Receipt Date: 20081113
  Transmission Date: 20090719
  Serious: No
  Sender: FDA-Public Use
  Company Number: A0615782A

PATIENT
  Age: 70 Year
  Sex: Male

DRUGS (8)
  1. REQUIP [Suspect]
     Indication: RESTLESS LEGS SYNDROME
     Dosage: 2MG TWICE PER DAY
     Route: 048
     Dates: start: 20060401
  2. REQUIP XL [Suspect]
  3. ROPINIROLE [Suspect]
  4. TOPROL-XL [Concomitant]
  5. SIMVASTATIN [Concomitant]
  6. ZOLOFT [Concomitant]
  7. VITAMIN [Concomitant]
  8. GLUCOSAMINE CHONDROITIN [Concomitant]

REACTIONS (5)
  - DRUG EFFECT DELAYED [None]
  - DRUG INEFFECTIVE [None]
  - MIDDLE INSOMNIA [None]
  - RESTLESS LEGS SYNDROME [None]
  - SOMNOLENCE [None]
